FAERS Safety Report 16852486 (Version 1)
Quarter: 2019Q3

REPORT INFORMATION
  Report Type: Spontaneous
  Country: US (occurrence: US)
  Receive Date: 20190925
  Receipt Date: 20190925
  Transmission Date: 20191005
  Serious: No
  Sender: FDA-Public Use
  Company Number: US-LEADING PHARMA, LLC-2074908

PATIENT

DRUGS (1)
  1. LORAZEPAM. [Suspect]
     Active Substance: LORAZEPAM

REACTIONS (5)
  - Sleep disorder [Unknown]
  - Tremor [Unknown]
  - Insomnia [Unknown]
  - Anxiety [Unknown]
  - Disturbance in attention [Unknown]
